FAERS Safety Report 19076404 (Version 1)
Quarter: 2021Q1

REPORT INFORMATION
  Report Type: Other
  Country: CN (occurrence: CN)
  Receive Date: 20210331
  Receipt Date: 20210331
  Transmission Date: 20210420
  Serious: Yes (Other)
  Sender: FDA-Public Use
  Company Number: CN-ROCHE-2763342

PATIENT

DRUGS (4)
  1. OXALIPLATIN. [Suspect]
     Active Substance: OXALIPLATIN
     Indication: ADENOCARCINOMA GASTRIC
     Dosage: DAY 1 FOR FOR 3 CYCLES
     Route: 042
  2. CAPECITABINE. [Suspect]
     Active Substance: CAPECITABINE
     Indication: ADENOCARCINOMA GASTRIC
     Dosage: FOR 3 CYCLES
     Route: 048
  3. CAPECITABINE. [Suspect]
     Active Substance: CAPECITABINE
     Indication: GASTROOESOPHAGEAL CANCER
  4. OXALIPLATIN. [Suspect]
     Active Substance: OXALIPLATIN
     Indication: GASTROOESOPHAGEAL CANCER

REACTIONS (5)
  - Neutropenia [Unknown]
  - Thrombocytopenia [Unknown]
  - Gamma-glutamyltransferase increased [Unknown]
  - Leukopenia [Unknown]
  - Aspartate aminotransferase increased [Unknown]
